FAERS Safety Report 20016778 (Version 1)
Quarter: 2021Q4

REPORT INFORMATION
  Report Type: Spontaneous
  Country: US (occurrence: None)
  Receive Date: 20211104
  Receipt Date: 20211104
  Transmission Date: 20220303
  Serious: No
  Sender: FDA-Public Use
  Company Number: None

PATIENT
  Age: 6 Year
  Sex: Male
  Weight: 23.4 kg

DRUGS (1)
  1. CEPHALEXIN [Suspect]
     Active Substance: CEPHALEXIN
     Dosage: 2 TEASPOONS TWICE A DAY
     Route: 048
     Dates: start: 20211102, end: 20211104

REACTIONS (2)
  - Erythema [None]
  - Erythema [None]

NARRATIVE: CASE EVENT DATE: 20211102
